FAERS Safety Report 8052784-1 (Version None)
Quarter: 2012Q1

REPORT INFORMATION
  Report Type: 
  Country: None (occurrence: None)
  Receive Date: 20120118
  Receipt Date: 20120116
  Transmission Date: 20120608
  Serious: Yes (Death, Other)
  Sender: FDA-Public Use
  Company Number: PHHY2012PE003404

PATIENT
  Sex: Male

DRUGS (1)
  1. EXELON [Suspect]
     Indication: DEMENTIA ALZHEIMER'S TYPE
     Dosage: 9.5 MG\24H
     Route: 062
     Dates: start: 20110429

REACTIONS (3)
  - PNEUMONIA [None]
  - TERMINAL STATE [None]
  - FEELING ABNORMAL [None]
